FAERS Safety Report 5217097-1 (Version None)
Quarter: 2007Q1

REPORT INFORMATION
  Report Type: 
  Country: None (occurrence: None)
  Receive Date: 20070124
  Receipt Date: 20070116
  Transmission Date: 20070707
  Serious: Yes (Hospitalization)
  Sender: FDA-Public Use
  Company Number: CA-ELI_LILLY_AND_COMPANY-CA200612004093

PATIENT
  Age: 78 Year
  Sex: Female

DRUGS (8)
  1. FORTEO [Suspect]
     Indication: OSTEOPOROSIS
     Dosage: 20 UG, DAILY (1/D)
     Route: 058
     Dates: start: 20060915
  2. OXYGEN [Concomitant]
     Dosage: UNK, UNK
  3. SEREVENT [Concomitant]
  4. FLUTICASONE PROPIONATE W/SALMETEROL XINAFOATE [Concomitant]
     Dosage: UNK, 2/D
  5. SPIRIVA [Concomitant]
     Dosage: 18 UG, DAILY (1/D)
  6. PANTOLOC ^SOLVAY^ [Concomitant]
     Dosage: 40 MG, DAILY (1/D)
  7. TRIMEBUTINE MALEATE [Concomitant]
     Dosage: 200 MG, 3/D
  8. SALBUTAMOL [Concomitant]

REACTIONS (3)
  - BRONCHITIS [None]
  - CHRONIC OBSTRUCTIVE PULMONARY DISEASE [None]
  - INJECTION SITE BRUISING [None]
